FAERS Safety Report 6250391-4 (Version None)
Quarter: 2009Q2

REPORT INFORMATION
  Report Type: 
  Country: None (occurrence: None)
  Receive Date: 20090630
  Receipt Date: 20090618
  Transmission Date: 20091009
  Serious: Yes (Hospitalization, Other)
  Sender: FDA-Public Use
  Company Number: US-BRISTOL-MYERS SQUIBB COMPANY-14670335

PATIENT
  Age: 4 Year
  Sex: Male
  Weight: 15 kg

DRUGS (6)
  1. SPRYCEL [Suspect]
     Indication: ACUTE LYMPHOCYTIC LEUKAEMIA
     Dosage: START DATE:24APR09; DAYS 15-28. 60MG/M2 ON DAYS 1-14 INTERRUPTED ON 20MAY09.
     Route: 048
     Dates: start: 20090519
  2. IFOSFAMIDE [Suspect]
     Indication: ACUTE LYMPHOCYTIC LEUKAEMIA
     Dosage: 1ST COURSE:24APR09. 1800MG/M2 OVR 1HR.1-5D. INT'D 20MAY09
     Route: 042
     Dates: start: 20090519
  3. ETOPOSIDE [Suspect]
     Indication: ACUTE LYMPHOCYTIC LEUKAEMIA
     Dosage: 100MG/M2 DAYS 1-5 1ST COURSE:24APR09. INT'D 20MAY09
     Route: 042
     Dates: start: 20090519
  4. HYDROCORTISONE [Suspect]
     Indication: ACUTE LYMPHOCYTIC LEUKAEMIA
     Dosage: 1ST COURSE:24APR09 8-15MG,IT 15,22,29D WK6-8:DAY 1, 8,15
     Route: 037
     Dates: start: 20090519, end: 20090519
  5. CYTARABINE [Suspect]
     Indication: ACUTE LYMPHOCYTIC LEUKAEMIA
     Dosage: 16-30 MG 1ST THERAPY:24APR09. WK6-8: DAYS 1,8,15
     Route: 037
     Dates: start: 20090519, end: 20090519
  6. METHOTREXATE [Suspect]
     Indication: ACUTE LYMPHOCYTIC LEUKAEMIA
     Dosage: LAST DOSE:19MAY09. 8-15MG.IT ON15,22,29DAYS. WK6-8:D8,15 WK9-11:D1 WK15-23,27-35:1,22D 20MG/M2
     Route: 037
     Dates: start: 20090519, end: 20090519

REACTIONS (4)
  - ASPARTATE AMINOTRANSFERASE INCREASED [None]
  - HYPOKALAEMIA [None]
  - HYPONATRAEMIA [None]
  - NEUROTOXICITY [None]
